FAERS Safety Report 8085346-0 (Version None)
Quarter: 2012Q1

REPORT INFORMATION
  Report Type: 
  Country: None (occurrence: None)
  Receive Date: 20120128
  Receipt Date: 20110418
  Transmission Date: 20120608
  Serious: No
  Sender: FDA-Public Use
  Company Number: US-ABBOTT-09P-163-0598494-00

PATIENT
  Sex: Female

DRUGS (2)
  1. HUMIRA [Suspect]
     Indication: RHEUMATOID ARTHRITIS
     Dates: start: 20081001, end: 20090828
  2. HUMIRA [Suspect]
     Route: 058
     Dates: start: 20090828

REACTIONS (3)
  - DRUG INEFFECTIVE [None]
  - RASH [None]
  - ACNE [None]
